FAERS Safety Report 21055235 (Version 1)
Quarter: 2022Q3

REPORT INFORMATION
  Report Type: Other
  Country: US (occurrence: None)
  Receive Date: 20220708
  Receipt Date: 20220708
  Transmission Date: 20221027
  Serious: No
  Sender: FDA-Public Use
  Company Number: US-Encube-000195

PATIENT
  Age: 3 Year
  Sex: Male

DRUGS (1)
  1. TRIAMCINOLONE ACETONIDE [Suspect]
     Active Substance: TRIAMCINOLONE ACETONIDE
     Indication: Keloid scar
     Dosage: 40 MG/ML
     Route: 026

REACTIONS (3)
  - Injection site discolouration [Recovering/Resolving]
  - Skin atrophy [Recovering/Resolving]
  - Lipoatrophy [Recovering/Resolving]
